FAERS Safety Report 16902425 (Version 1)
Quarter: 2019Q4

REPORT INFORMATION
  Report Type: Spontaneous
  Country: SE (occurrence: SE)
  Receive Date: 20191010
  Receipt Date: 20191010
  Transmission Date: 20200122
  Serious: Yes (Other)
  Sender: FDA-Public Use
  Company Number: SE-TEVA-2019-SE-1118828

PATIENT
  Sex: Female

DRUGS (4)
  1. BISOPROLOL [Suspect]
     Active Substance: BISOPROLOL
     Route: 065
  2. BETOLVEX [Concomitant]
     Active Substance: CYANOCOBALAMIN
  3. FOLACIN [Concomitant]
  4. LEVAXIN 75 MIKROGRAM TABLETT [Concomitant]

REACTIONS (3)
  - Skin discolouration [Unknown]
  - Hallucination [Unknown]
  - Rhinorrhoea [Unknown]
